FAERS Safety Report 14867539 (Version 3)
Quarter: 2018Q2

REPORT INFORMATION
  Report Type: Spontaneous
  Country: FR (occurrence: FR)
  Receive Date: 20180508
  Receipt Date: 20180508
  Transmission Date: 20180711
  Serious: Yes (Other)
  Sender: FDA-Public Use
  Company Number: PHHY2017FR197046

PATIENT
  Age: 50 Year
  Sex: Male

DRUGS (5)
  1. PREDNISOLONE. [Suspect]
     Active Substance: PREDNISOLONE
     Indication: PAIN IN JAW
     Dosage: 60 MG, QD
     Route: 048
  2. PREDNISOLONE. [Suspect]
     Active Substance: PREDNISOLONE
     Indication: STEROID THERAPY
  3. SPIRAMYCIN+METRONIDAZOLE SANDOZ [Suspect]
     Active Substance: METRONIDAZOLE\SPIRAMYCIN
     Indication: PAIN IN JAW
     Dosage: UNK
     Route: 065
  4. METRONIDAZOL [Concomitant]
     Active Substance: METRONIDAZOLE
     Indication: ANTIBIOTIC THERAPY
     Route: 065
  5. SPIRAMYCIN [Concomitant]
     Active Substance: SPIRAMYCIN
     Indication: ANTIBIOTIC THERAPY
     Route: 065

REACTIONS (3)
  - Therapy non-responder [Unknown]
  - Dental restoration failure [None]
  - Osteomyelitis bacterial [Recovered/Resolved]
